FAERS Safety Report 10166056 (Version 2)
Quarter: 2014Q2

REPORT INFORMATION
  Report Type: Report from Study
  Country: IE (occurrence: IE)
  Receive Date: 20140512
  Receipt Date: 20140523
  Transmission Date: 20141212
  Serious: Yes (Hospitalization, Other)
  Sender: FDA-Public Use
  Company Number: IE-ROCHE-1397875

PATIENT
  Sex: Male

DRUGS (2)
  1. OMALIZUMAB [Suspect]
     Indication: SEASONAL ALLERGY
     Route: 065
     Dates: start: 20140307
  2. OMALIZUMAB [Suspect]
     Route: 065

REACTIONS (2)
  - Rash [Recovered/Resolved]
  - Off label use [Unknown]
